FAERS Safety Report 14959555 (Version 1)
Quarter: 2018Q2

REPORT INFORMATION
  Report Type: Spontaneous
  Country: US (occurrence: US)
  Receive Date: 20180531
  Receipt Date: 20180531
  Transmission Date: 20180711
  Serious: No
  Sender: FDA-Public Use
  Company Number: US-PERRIGO-17US025662

PATIENT
  Sex: Male
  Weight: 77.98 kg

DRUGS (2)
  1. MINOXIDIL. [Suspect]
     Active Substance: MINOXIDIL
     Indication: ALOPECIA
     Dosage: 1/2 CAPFUL, BID
     Route: 061
     Dates: start: 201703, end: 201704
  2. DRUGS USED IN BENIGN PROSTATIC HYPERTROPHY [Concomitant]
     Active Substance: UNSPECIFIED INGREDIENT
     Indication: PROSTATOMEGALY
     Dosage: UNK
     Route: 065
     Dates: end: 2017

REACTIONS (4)
  - Chest pain [Recovered/Resolved]
  - Product administered at inappropriate site [Recovered/Resolved]
  - Dizziness [Not Recovered/Not Resolved]
  - Alopecia [Not Recovered/Not Resolved]

NARRATIVE: CASE EVENT DATE: 2017
